FAERS Safety Report 7338180-0 (Version None)
Quarter: 2011Q1

REPORT INFORMATION
  Report Type: 
  Country: None (occurrence: None)
  Receive Date: 20110308
  Receipt Date: 20110223
  Transmission Date: 20110831
  Serious: Yes (Hospitalization)
  Sender: FDA-Public Use
  Company Number: FR-ELI_LILLY_AND_COMPANY-FR201103000383

PATIENT
  Age: 79 Year
  Sex: Female

DRUGS (2)
  1. LAMISIL [Concomitant]
     Indication: FUNGAL INFECTION
     Dates: start: 20081117, end: 20090105
  2. CYMBALTA [Suspect]
     Indication: DEPRESSION
     Route: 048
     Dates: start: 20081117, end: 20090108

REACTIONS (7)
  - PRURITUS [None]
  - SKIN EXFOLIATION [None]
  - PURPURA [None]
  - RASH PAPULAR [None]
  - TOXIC SKIN ERUPTION [None]
  - ERYTHEMA [None]
  - DERMATITIS [None]
